FAERS Safety Report 4882392-2 (Version None)
Quarter: 2005Q4

REPORT INFORMATION
  Report Type: 
  Country: None (occurrence: None)
  Receive Date: 20051201
  Receipt Date: 20050928
  Transmission Date: 20060501
  Serious: No
  Sender: FDA-Public Use
  Company Number: 2005PV002623

PATIENT
  Age: 54 Year
  Sex: Male
  Weight: 90.7194 kg

DRUGS (11)
  1. BYETTA [Suspect]
     Indication: DIABETES MELLITUS NON-INSULIN-DEPENDENT
     Dosage: 5 MCG;BID;SC
     Route: 058
     Dates: start: 20050924
  2. METFORMIN HCL [Concomitant]
  3. GLUCOTROL XL [Concomitant]
  4. DYAZIDE [Concomitant]
  5. ACTOS [Concomitant]
  6. ZOCOR [Concomitant]
  7. VASOTEC [Concomitant]
  8. PRILOSEC [Concomitant]
  9. VITAMIN B-12 [Concomitant]
  10. ASPIRIN [Concomitant]
  11. CENTRUM [Concomitant]

REACTIONS (1)
  - BLOOD GLUCOSE INCREASED [None]
